FAERS Safety Report 5854962-6 (Version None)
Quarter: 2008Q3

REPORT INFORMATION
  Report Type: 
  Country: None (occurrence: None)
  Receive Date: 20080822
  Receipt Date: 20080813
  Transmission Date: 20090109
  Serious: Yes (Death)
  Sender: FDA-Public Use
  Company Number: IT-MERCK-0808USA02520

PATIENT
  Age: 61 Year
  Sex: Female

DRUGS (1)
  1. DECADRON [Suspect]
     Indication: BURKITT'S LYMPHOMA
     Route: 048

REACTIONS (2)
  - BURKITT'S LYMPHOMA [None]
  - DRUG INEFFECTIVE [None]
